FAERS Safety Report 7706606-6 (Version None)
Quarter: 2011Q3

REPORT INFORMATION
  Report Type: 
  Country: None (occurrence: None)
  Receive Date: 20110804
  Receipt Date: 20110426
  Transmission Date: 20111222
  Serious: No
  Sender: FDA-Public Use
  Company Number: 2011-05998

PATIENT
  Age: 81 Year
  Sex: Male

DRUGS (1)
  1. RAPAFLO [Suspect]
     Indication: POLLAKIURIA
     Dosage: 8 MG, DAILY, ORAL
     Route: 048
     Dates: start: 20110420

REACTIONS (2)
  - DIZZINESS [None]
  - ORTHOSTATIC HYPOTENSION [None]
